FAERS Safety Report 11644579 (Version 1)
Quarter: 2015Q4

REPORT INFORMATION
  Report Type: Spontaneous
  Country: US (occurrence: None)
  Receive Date: 20151019
  Receipt Date: 20151019
  Transmission Date: 20160304
  Serious: Yes (Disabling)
  Sender: FDA-Public Use
  Company Number: None

PATIENT
  Age: 63 Year
  Sex: Female
  Weight: 119.75 kg

DRUGS (15)
  1. METROPROLOL TARTRATE [Concomitant]
     Active Substance: METOPROLOL TARTRATE
  2. MAGNESIUM COMPLEX [Concomitant]
  3. FLUOROURACIL 5%, 40 GM SPEAR [Suspect]
     Active Substance: FLUOROURACIL
     Indication: ACTINIC KERATOSIS
     Dosage: APPLIED TO THE SURFACE, USUALLY THE SKIN?EVERY OTHER NIGHT
     Route: 061
     Dates: start: 20150811, end: 20151006
  4. LISINOPRIL AND HYDROCHLOROTHIAZIDE [Concomitant]
     Active Substance: HYDROCHLOROTHIAZIDE\LISINOPRIL
  5. DULERA [Concomitant]
     Active Substance: FORMOTEROL FUMARATE DIHYDRATE\MOMETASONE FUROATE
  6. HPF CHOLESTENE [Concomitant]
  7. SUPER SUPPLEMENTAL WITHOUT IRON [Concomitant]
  8. PROAIR HFA [Concomitant]
     Active Substance: ALBUTEROL SULFATE
  9. NATURE^S SUNSHINE NUTRI-CALM (B COMPLEX) [Concomitant]
  10. GNC VITAMIN C [Concomitant]
  11. NATURES SUNSHINE EVERFLEX [Concomitant]
  12. CINNABETIC II [Concomitant]
  13. JARROW UBIQUINOL [Concomitant]
  14. MEDOP MAXI TEARS [Concomitant]
  15. CELEBREX [Concomitant]
     Active Substance: CELECOXIB

REACTIONS (2)
  - Rash [None]
  - Herpes zoster [None]

NARRATIVE: CASE EVENT DATE: 20151002
